FAERS Safety Report 7868326-7 (Version None)
Quarter: 2011Q4

REPORT INFORMATION
  Report Type: 
  Country: None (occurrence: None)
  Receive Date: 20111028
  Receipt Date: 20101214
  Transmission Date: 20120403
  Serious: No
  Sender: FDA-Public Use
  Company Number: US-AMGEN-USASP2010009208

PATIENT
  Age: 60 Year
  Sex: Female
  Weight: 79.365 kg

DRUGS (12)
  1. DEPAKOTE [Concomitant]
     Dosage: 125 MG, UNK
  2. DIOVAN [Concomitant]
     Dosage: 40 MG, UNK
  3. ENBREL [Suspect]
     Indication: RHEUMATOID ARTHRITIS
     Dosage: 50 MG, QWK
     Route: 058
  4. ARAVA [Concomitant]
     Dosage: 10 MG, UNK
  5. ZOCOR [Concomitant]
     Dosage: 20 MG, UNK
  6. NORVASC [Concomitant]
     Dosage: 5 MG, UNK
  7. ECOTRIN 650 [Concomitant]
     Dosage: 81 MG, UNK
  8. HYDROMORPHONE HCL [Concomitant]
     Dosage: 4 MG, UNK
  9. TIZANIDINE HCL [Concomitant]
     Dosage: 4 MG, UNK
  10. CLONAZEPAM [Concomitant]
     Dosage: 1 MG, UNK
  11. SIMVASTATIN [Concomitant]
     Dosage: 10 MG, UNK
  12. TEMAZEPAM [Concomitant]
     Dosage: 15 MG, UNK

REACTIONS (1)
  - BRONCHITIS [None]
